FAERS Safety Report 5164370-1 (Version None)
Quarter: 2006Q4

REPORT INFORMATION
  Report Type: 
  Country: None (occurrence: None)
  Receive Date: 20061129
  Receipt Date: 20061129
  Transmission Date: 20070319
  Serious: Yes (Other)
  Sender: FDA-Public Use
  Company Number: None

PATIENT
  Age: 68 Year
  Sex: Female
  Weight: 67.586 kg

DRUGS (1)
  1. FOSAMAX [Suspect]
     Indication: OSTEOPOROSIS
     Dosage: 70MG ONCE PER WEEK PO
     Route: 048
     Dates: start: 19990510, end: 20061028

REACTIONS (3)
  - INFECTION [None]
  - OSTEONECROSIS [None]
  - TOOTH DISORDER [None]
